FAERS Safety Report 9915700 (Version 1)
Quarter: 2014Q1

REPORT INFORMATION
  Report Type: Spontaneous
  Country: US (occurrence: None)
  Receive Date: 20140219
  Receipt Date: 20140219
  Transmission Date: 20141002
  Serious: Yes (Disabling)
  Sender: FDA-Public Use
  Company Number: None

PATIENT
  Age: 62 Year
  Sex: Male
  Weight: 104.33 kg

DRUGS (8)
  1. ALLOPURINOL/ZYLOPRIM 300 MG [Suspect]
     Indication: GOUT
     Route: 048
     Dates: start: 20131122, end: 20140115
  2. ENALAPRIL HCTZ [Concomitant]
  3. SIMVASTATIN [Concomitant]
  4. MULTIVITAMIN [Concomitant]
  5. VIT C [Concomitant]
  6. NIACIN [Concomitant]
  7. LOW DOSE ASPIRIN [Concomitant]
  8. GLUCOSAMINE [Concomitant]

REACTIONS (5)
  - Tendon rupture [None]
  - Local swelling [None]
  - Pain in extremity [None]
  - Asthenia [None]
  - Gait disturbance [None]
